FAERS Safety Report 8914984 (Version 2)
Quarter: 2013Q1

REPORT INFORMATION
  Report Type: Spontaneous
  Country: CA (occurrence: CA)
  Receive Date: 20121116
  Receipt Date: 20130104
  Transmission Date: 20140127
  Serious: Yes (Other)
  Sender: FDA-Public Use
  Company Number: CA-009507513-1211CAN006460

PATIENT
  Sex: Male
  Weight: 70 kg

DRUGS (3)
  1. STROMECTOL [Suspect]
     Indication: STRONGYLOIDIASIS
     Dosage: 12 MG, QD
     Route: 065
     Dates: start: 2010
  2. STROMECTOL [Suspect]
     Dosage: 15 MG, QD
     Route: 065
     Dates: start: 201204
  3. STROMECTOL [Suspect]
     Dosage: 200 MICROGRAM PER KILOGRAM, UNK
     Route: 065
     Dates: start: 2012

REACTIONS (5)
  - Eosinophilia [Unknown]
  - Strongyloidiasis [Unknown]
  - Treatment failure [Unknown]
  - Drug interaction [Unknown]
  - Underdose [Unknown]
